FAERS Safety Report 5035247-7 (Version None)
Quarter: 2006Q2

REPORT INFORMATION
  Report Type: 
  Country: None (occurrence: None)
  Receive Date: 20060627
  Receipt Date: 20060519
  Transmission Date: 20061013
  Serious: Yes (Death)
  Sender: FDA-Public Use
  Company Number: US-ROCHE-448702

PATIENT
  Age: 48 Year
  Sex: Female

DRUGS (4)
  1. KLONOPIN [Suspect]
     Dosage: AT NIGHT
     Route: 048
     Dates: start: 20060315, end: 20060503
  2. CELEXA [Suspect]
     Route: 048
     Dates: start: 20060315, end: 20060503
  3. WELLBUTRIN [Suspect]
     Dosage: RECEIVED 27 FEB 2006- MARCH 2006 150 MG ONCE DAILY MARCH 2006-3 MAY 2006 150 MG TWICE DAILY
     Route: 048
     Dates: start: 20060227, end: 20060503
  4. TRAZODONE HCL [Suspect]
     Dosage: AT NIGHT
     Route: 065
     Dates: start: 20060315, end: 20060503

REACTIONS (3)
  - COMPLETED SUICIDE [None]
  - MEDICATION ERROR [None]
  - ROAD TRAFFIC ACCIDENT [None]
